FAERS Safety Report 4315766-9 (Version None)
Quarter: 2004Q1

REPORT INFORMATION
  Report Type: 
  Country: None (occurrence: None)
  Receive Date: 20040310
  Receipt Date: 20040302
  Transmission Date: 20041129
  Serious: Yes (Hospitalization)
  Sender: FDA-Public Use
  Company Number: USA-2004-0013541

PATIENT
  Age: 39 Year
  Sex: Male

DRUGS (10)
  1. HYDROMORPHONE HCL [Suspect]
     Indication: CANCER PAIN
     Dosage: SEE IMAGE
     Route: 042
  2. MORPHINE SULFATE [Concomitant]
  3. MIDAZOLAM HCL [Concomitant]
  4. PHENYTOIN [Concomitant]
  5. DEXAMETHASONE [Concomitant]
  6. KETAMINE HCL [Concomitant]
  7. FENTANYL [Concomitant]
  8. BUPIVACAINE [Concomitant]
  9. TETRACAINE (TETRACAINE) [Concomitant]
  10. CLONIDINE [Concomitant]

REACTIONS (4)
  - DRUG INEFFECTIVE [None]
  - DRUG LEVEL INCREASED [None]
  - DRUG TOLERANCE [None]
  - HYPERAESTHESIA [None]
